FAERS Safety Report 21492745 (Version 2)
Quarter: 2022Q4

REPORT INFORMATION
  Report Type: Report from Study
  Country: SG (occurrence: SG)
  Receive Date: 20221021
  Receipt Date: 20221031
  Transmission Date: 20230113
  Serious: Yes (Life-Threatening, Hospitalization, Disabling)
  Sender: FDA-Public Use
  Company Number: SG-JNJFOC-20220858927

PATIENT
  Age: 61 Year
  Sex: Male
  Weight: 58.9 kg

DRUGS (15)
  1. MACITENTAN [Suspect]
     Active Substance: MACITENTAN
     Indication: Pulmonary arterial hypertension
     Route: 048
     Dates: start: 20220509, end: 20220605
  2. MACITENTAN [Suspect]
     Active Substance: MACITENTAN
     Route: 048
     Dates: start: 20220606, end: 20220703
  3. MACITENTAN [Suspect]
     Active Substance: MACITENTAN
     Dosage: MED KIT: 203128, 212351, 412424, 423815
     Route: 048
     Dates: start: 20220704, end: 20220811
  4. MACITENTAN [Suspect]
     Active Substance: MACITENTAN
     Route: 048
     Dates: start: 20220704, end: 20220811
  5. SILDENAFIL [Concomitant]
     Active Substance: SILDENAFIL
     Indication: Pulmonary arterial hypertension
     Route: 048
     Dates: start: 20210326, end: 20220830
  6. SILDENAFIL [Concomitant]
     Active Substance: SILDENAFIL
     Route: 048
     Dates: start: 20220831
  7. SILDENAFIL [Concomitant]
     Active Substance: SILDENAFIL
     Dates: start: 20210625
  8. OLODATEROL HYDROCHLORIDE\TIOTROPIUM BROMIDE MONOHYDRATE [Concomitant]
     Active Substance: OLODATEROL HYDROCHLORIDE\TIOTROPIUM BROMIDE MONOHYDRATE
     Indication: Chronic obstructive pulmonary disease
     Dosage: 2.5 MCG
     Route: 055
     Dates: start: 20210625
  9. ALBUTEROL [Concomitant]
     Active Substance: ALBUTEROL
     Route: 055
     Dates: start: 20220812
  10. OMEPRAZOLE [Concomitant]
     Active Substance: OMEPRAZOLE
  11. OMNIPAQUE [Concomitant]
     Active Substance: IOHEXOL
     Indication: Catheterisation cardiac
  12. ADENOSINE [Concomitant]
     Active Substance: ADENOSINE
     Indication: Catheterisation cardiac
  13. POTASSIUM CHLORIDE [Concomitant]
     Active Substance: POTASSIUM CHLORIDE
     Indication: Rales
     Route: 048
     Dates: start: 20220509, end: 20220523
  14. LORATADINE [Concomitant]
     Active Substance: LORATADINE
     Indication: Urticaria
     Route: 048
     Dates: start: 20220419, end: 20220530
  15. INFLUENZA VIRUS VACCINE [Concomitant]
     Active Substance: INFLUENZA VIRUS VACCINE
     Indication: Immunisation
     Route: 030
     Dates: start: 20220722, end: 20220722

REACTIONS (1)
  - Hypoxia [Recovered/Resolved with Sequelae]

NARRATIVE: CASE EVENT DATE: 20220523
